FAERS Safety Report 19810571 (Version 4)
Quarter: 2021Q3

REPORT INFORMATION
  Report Type: Spontaneous
  Country: IT (occurrence: IT)
  Receive Date: 20210909
  Receipt Date: 20210930
  Transmission Date: 20211014
  Serious: Yes (Death)
  Sender: FDA-Public Use
  Company Number: IT-ACCORD-237984

PATIENT
  Age: 47 Year
  Sex: Male
  Weight: 182 kg

DRUGS (5)
  1. MODITEN DEPOT [Concomitant]
  2. CLOZAPINE ACCORD [Suspect]
     Active Substance: CLOZAPINE
     Indication: DEPRESSION
     Route: 048
     Dates: start: 20210730, end: 20210818
  3. METFORMIN AUROBINDO [Suspect]
     Active Substance: METFORMIN HYDROCHLORIDE
     Indication: DIABETES MELLITUS
     Route: 048
     Dates: start: 20210720, end: 20210818
  4. DEPAKIN [Suspect]
     Active Substance: VALPROATE SODIUM
     Indication: PRODUCT USED FOR UNKNOWN INDICATION
     Route: 048
  5. COMIRNATY [Suspect]
     Active Substance: TOZINAMERAN
     Indication: COVID-19 IMMUNISATION
     Dosage: TOTAL
     Route: 030
     Dates: start: 20210803, end: 20210803

REACTIONS (3)
  - Decreased activity [Fatal]
  - Sopor [Fatal]
  - Hyporeflexia [Fatal]
